FAERS Safety Report 14641458 (Version 1)
Quarter: 2018Q1

REPORT INFORMATION
  Report Type: Spontaneous
  Country: None (occurrence: FR)
  Receive Date: 20180315
  Receipt Date: 20180315
  Transmission Date: 20180509
  Serious: Yes (Death)
  Sender: FDA-Public Use
  Company Number: FR-MEDAC PHARMA, INC.-2043831

PATIENT
  Age: 50 Year
  Sex: Female
  Weight: 61 kg

DRUGS (4)
  1. FOLIC ACID. [Concomitant]
     Active Substance: FOLIC ACID
     Dates: start: 20160416
  2. METOJECT [Suspect]
     Active Substance: METHOTREXATE SODIUM
     Indication: RHEUMATOID ARTHRITIS
     Dates: start: 20160416
  3. SIMPONI [Suspect]
     Active Substance: GOLIMUMAB
     Route: 058
     Dates: start: 20160601
  4. ARAVA [Suspect]
     Active Substance: LEFLUNOMIDE
     Dates: start: 20070101, end: 20160616

REACTIONS (1)
  - Lung cancer metastatic [Fatal]
